FAERS Safety Report 18249651 (Version 1)
Quarter: 2020Q3

REPORT INFORMATION
  Report Type: Spontaneous
  Country: IT (occurrence: IT)
  Receive Date: 20200909
  Receipt Date: 20200909
  Transmission Date: 20201103
  Serious: Yes (Hospitalization)
  Sender: FDA-Public Use
  Company Number: IT-DSJP-DSE-2020-126177

PATIENT
  Age: 60 Year
  Sex: Male

DRUGS (3)
  1. RIVAROXABAN [Suspect]
     Active Substance: RIVAROXABAN
     Indication: ATRIAL FIBRILLATION
     Dosage: UNK, STOPPED ON AN UNKNOWN DATE DUE TO ORTHOPAEDIC SURGERY
  2. EDOXABAN [Suspect]
     Active Substance: EDOXABAN TOSYLATE
     Indication: ATRIAL FIBRILLATION
     Dosage: UNK
  3. RIVAROXABAN [Suspect]
     Active Substance: RIVAROXABAN
     Dosage: UKN, RESTARTED ON AN UNKNOWN DATE AFTER ORTHOPAEDIC SURGERY

REACTIONS (1)
  - Type IV hypersensitivity reaction [Recovered/Resolved]
